FAERS Safety Report 8085329-0 (Version None)
Quarter: 2012Q1

REPORT INFORMATION
  Report Type: 
  Country: None (occurrence: None)
  Receive Date: 20120128
  Receipt Date: 20110525
  Transmission Date: 20120608
  Serious: No
  Sender: FDA-Public Use
  Company Number: US-ABBOTT-07P-163-0427953-00

PATIENT
  Sex: Male
  Weight: 72.64 kg

DRUGS (5)
  1. LEXAPRO [Concomitant]
     Indication: PRODUCT USED FOR UNKNOWN INDICATION
     Route: 048
  2. HUMIRA [Suspect]
     Route: 058
     Dates: start: 20060101
  3. HUMIRA [Suspect]
     Indication: CROHN'S DISEASE
     Route: 058
     Dates: start: 20070701, end: 20070701
  4. MIRAPEX [Concomitant]
     Indication: RESTLESS LEGS SYNDROME
     Route: 048
  5. HUMIRA [Suspect]
     Route: 058

REACTIONS (7)
  - BACK PAIN [None]
  - ABDOMINAL DISCOMFORT [None]
  - INJECTION SITE PAIN [None]
  - CROHN'S DISEASE [None]
  - INJECTION SITE INDURATION [None]
  - WEIGHT INCREASED [None]
  - HEADACHE [None]
